FAERS Safety Report 16416201 (Version 2)
Quarter: 2019Q3

REPORT INFORMATION
  Report Type: Spontaneous
  Country: GB (occurrence: GB)
  Receive Date: 20190611
  Receipt Date: 20190809
  Transmission Date: 20191004
  Serious: Yes (Other)
  Sender: FDA-Public Use
  Company Number: GB-JNJFOC-20190612523

PATIENT
  Sex: Male

DRUGS (2)
  1. AZATHIOPRINE. [Concomitant]
     Active Substance: AZATHIOPRINE
     Indication: CROHN^S DISEASE
     Route: 065
  2. INFLIXIMAB, RECOMBINANT [Suspect]
     Active Substance: INFLIXIMAB
     Indication: CROHN^S DISEASE
     Route: 042

REACTIONS (7)
  - Paradoxical drug reaction [Recovered/Resolved]
  - Alopecia [Recovering/Resolving]
  - Product use issue [Unknown]
  - Condition aggravated [Recovered/Resolved]
  - Psoriasis [Unknown]
  - Psoriasis [Recovering/Resolving]
  - Off label use [Unknown]
